FAERS Safety Report 4920570-4 (Version None)
Quarter: 2006Q1

REPORT INFORMATION
  Report Type: 
  Country: None (occurrence: None)
  Receive Date: 20060217
  Receipt Date: 20060206
  Transmission Date: 20060701
  Serious: Yes (Death)
  Sender: FDA-Public Use
  Company Number: 2006017288

PATIENT
  Age: 75 Year
  Sex: Male

DRUGS (2)
  1. ESTRACYT (ESTRAMUSTINE PHOSPHATE SODIUM) [Suspect]
     Indication: PROSTATE CANCER
     Dosage: 280 MG (X7/WEEK), ORAL
     Route: 048
     Dates: start: 20051220, end: 20051228
  2. DOCETAXEL (DOCETAXEL) [Suspect]
     Indication: PROSTATE CANCER
     Dosage: 48.3 MG (WEEK), INTRAVENOUS
     Route: 042
     Dates: start: 20051222, end: 20051228

REACTIONS (5)
  - CARDIAC FAILURE [None]
  - DIARRHOEA [None]
  - PNEUMONIA [None]
  - RESPIRATORY FAILURE [None]
  - WHITE BLOOD CELL COUNT DECREASED [None]
